FAERS Safety Report 14645546 (Version 1)
Quarter: 2018Q1

REPORT INFORMATION
  Report Type: Spontaneous
  Country: DE (occurrence: DE)
  Receive Date: 20180316
  Receipt Date: 20180316
  Transmission Date: 20180509
  Serious: Yes (Life-Threatening, Hospitalization, Other)
  Sender: FDA-Public Use
  Company Number: DE-AMGEN-DEUSP2018033752

PATIENT
  Sex: Female

DRUGS (6)
  1. DOXORUBICINE [Suspect]
     Active Substance: DOXORUBICIN
     Indication: B-CELL LYMPHOMA
     Dosage: 82 MG, Q2WK (EVERY 14 DAYS FOR 1 DAY (S))
     Route: 042
     Dates: start: 20180202, end: 20180202
  2. CYCLOPHOSPHAMIDE. [Suspect]
     Active Substance: CYCLOPHOSPHAMIDE
     Indication: B-CELL LYMPHOMA
     Dosage: 1240 MG, Q2WK Q2WK (EVERY 14 DAYS FOR 1 DAY (S))
     Route: 042
     Dates: start: 20180202, end: 20180202
  3. PREDNISONE. [Suspect]
     Active Substance: PREDNISONE
     Indication: B-CELL LYMPHOMA
     Dosage: 100 MG, Q2WK (EVERY 14 DAYS FOR 6 DAY (S))
     Route: 048
     Dates: start: 20180131, end: 20180205
  4. RITUXIMAB. [Suspect]
     Active Substance: RITUXIMAB
     Indication: B-CELL LYMPHOMA
     Dosage: 620 MG, Q2WK (ONCE EVERY 14 DAYS FOR 1 DAY (S))
     Route: 042
     Dates: start: 20180131, end: 20180131
  5. VINCRISTINE LIPOSOMAL [Suspect]
     Active Substance: VINCRISTINE
     Indication: B-CELL LYMPHOMA
     Dosage: 1.38 MG, Q2WK (EVERY 14 DAYS FOR 1 DAY (S))
     Route: 042
     Dates: start: 20180202, end: 20180202
  6. PEGFILGRASTIM [Suspect]
     Active Substance: PEGFILGRASTIM
     Indication: B-CELL LYMPHOMA
     Dosage: 6 MG, Q2WK (EVERY 14 DAYS FOR 1 DAY (S))
     Route: 058
     Dates: start: 20180204, end: 20180204

REACTIONS (2)
  - Pneumonia influenzal [Recovered/Resolved]
  - Sepsis [Recovered/Resolved]

NARRATIVE: CASE EVENT DATE: 20180203
